FAERS Safety Report 5710353-X (Version None)
Quarter: 2008Q2

REPORT INFORMATION
  Report Type: 
  Country: None (occurrence: None)
  Receive Date: 20080418
  Receipt Date: 20080408
  Transmission Date: 20081010
  Serious: Yes (Hospitalization, Other)
  Sender: FDA-Public Use
  Company Number: NO-PFIZER INC-2008031621

PATIENT
  Sex: Male

DRUGS (3)
  1. GENOTROPIN [Suspect]
     Indication: SMALL FOR DATES BABY
     Dates: start: 20040504, end: 20061129
  2. CONCERTA [Concomitant]
     Route: 048
  3. MELATONIN [Concomitant]
     Route: 048

REACTIONS (1)
  - PANCREATITIS [None]
